FAERS Safety Report 5910566-8 (Version None)
Quarter: 2008Q4

REPORT INFORMATION
  Report Type: 
  Country: None (occurrence: None)
  Receive Date: 20081007
  Receipt Date: 20080321
  Transmission Date: 20090506
  Serious: No
  Sender: FDA-Public Use
  Company Number: US-ASTRAZENECA-2008UW05843

PATIENT
  Age: 62 Year
  Sex: Female
  Weight: 74.4 kg

DRUGS (3)
  1. ARIMIDEX [Suspect]
     Indication: BREAST CANCER
     Route: 048
     Dates: start: 20080320
  2. LISINOPRIL [Concomitant]
     Route: 048
  3. ZOCOR [Concomitant]

REACTIONS (1)
  - ABDOMINAL PAIN UPPER [None]
